FAERS Safety Report 9036376 (Version 1)
Quarter: 2013Q1

REPORT INFORMATION
  Report Type: Spontaneous
  Country: AU (occurrence: None)
  Receive Date: 20130114
  Receipt Date: 20130114
  Transmission Date: 20140127
  Serious: Yes (Life-Threatening, Hospitalization)
  Sender: FDA-Public Use
  Company Number: AU-INDICUS PHARMA-000045

PATIENT
  Age: 65 Year
  Sex: Male

DRUGS (7)
  1. METFORMIN HYDROCHLORIDE [Suspect]
     Indication: TYPE 2 DIABETES MELLITUS
  2. SPIRONOLACTONE (SPIRONOLACTONE) [Suspect]
     Indication: PRODUCT USED FOR UNKNOWN INDICATION
  3. TRANDOLAPRIL [Suspect]
     Indication: PRODUCT USED FOR UNKNOWN INDICATION
  4. FRUSEMIDE (FRUSEMIDE) [Concomitant]
  5. INSULIN (INSULIN) [Concomitant]
  6. WARFARIN (WARFARIN) [Concomitant]
  7. ATENOLOL (ATENOLOL) [Concomitant]

REACTIONS (13)
  - Cardio-respiratory arrest [None]
  - Hyperkalaemia [None]
  - Hypothermia [None]
  - Lactic acidosis [None]
  - Atrioventricular block complete [None]
  - Hypoglycaemia [None]
  - Anaemia [None]
  - Coagulopathy [None]
  - Renal failure acute [None]
  - Melaena [None]
  - Nodal rhythm [None]
  - Blood pressure decreased [None]
  - Continuous haemodiafiltration [None]
